FAERS Safety Report 8139175-X (Version None)
Quarter: 2012Q1

REPORT INFORMATION
  Report Type: 
  Country: None (occurrence: None)
  Receive Date: 20120215
  Receipt Date: 20120207
  Transmission Date: 20120608
  Serious: Yes (Other)
  Sender: FDA-Public Use
  Company Number: GB-PFIZER INC-2012038187

PATIENT
  Sex: Female

DRUGS (5)
  1. CYTARABINE [Suspect]
     Dosage: 180 MG DAILY FOR FIVE DAYS, CYCLIC (MONTHLY COURSES)
     Route: 050
     Dates: end: 19740301
  2. DAUNORUBICIN HCL [Suspect]
     Indication: ACUTE MYELOID LEUKAEMIA
     Dosage: 140 MG, CYCLIC (ON DAY 1)
     Route: 050
     Dates: start: 19730101
  3. CYTARABINE [Suspect]
     Indication: ACUTE MYELOID LEUKAEMIA
     Dosage: 200 MG DAILY, CYCLIC (ON DAYS 1-5)
     Route: 050
     Dates: start: 19730101
  4. DAUNORUBICIN HCL [Suspect]
     Dosage: 140 MG, CYCLIC (ON DAY 1)
     Route: 050
     Dates: end: 19740301
  5. THIOGUANINE [Suspect]
     Indication: ACUTE MYELOID LEUKAEMIA
     Dosage: 160 MG DAILY FOR 5 DAYS, CYCLIC
     Route: 050
     Dates: end: 19740301

REACTIONS (1)
  - STILLBIRTH [None]
